FAERS Safety Report 7738119-X (Version None)
Quarter: 2011Q3

REPORT INFORMATION
  Report Type: 
  Country: None (occurrence: None)
  Receive Date: 20110906
  Receipt Date: 20110822
  Transmission Date: 20111222
  Serious: Yes (Other)
  Sender: FDA-Public Use
  Company Number: AUR-APL-2011-04757

PATIENT
  Age: 66 Year
  Sex: Female

DRUGS (13)
  1. MELOXICAM [Concomitant]
  2. FUROSEMIDE [Concomitant]
  3. ATORVASTATIN [Concomitant]
  4. MIRTAZAPINE [Suspect]
     Indication: PARANOIA
     Dosage: (15 MG, 1 D)
  5. TRAMADOL HCL [Suspect]
     Indication: PRODUCT USED FOR UNKNOWN INDICATION
     Dosage: 112.5 MG (37.5 MG, 3 IN 1 D)
  6. MOXIFLOXACIN HCL [Concomitant]
  7. TRAZODONE HCL [Concomitant]
  8. HALOPERIDOL [Suspect]
     Indication: PARANOIA
     Dosage: 4 MG (2 MG, 2 IN 1 D)
  9. OXYCODONE HCL [Concomitant]
  10. PAROXETINE HCL [Suspect]
     Indication: PRODUCT USED FOR UNKNOWN INDICATION
     Dosage: (20 MG, 1 D)
  11. DOMPERIDONE (DOMPERIDONE) [Concomitant]
  12. AMLODIPINE [Concomitant]
  13. IMIPRAMINE [Suspect]
     Indication: PRODUCT USED FOR UNKNOWN INDICATION
     Dosage: (25 MG, 1 D)

REACTIONS (13)
  - TREMOR [None]
  - ANION GAP INCREASED [None]
  - BLOOD MAGNESIUM DECREASED [None]
  - CONFUSIONAL STATE [None]
  - RESPIRATORY RATE INCREASED [None]
  - BLOOD UREA INCREASED [None]
  - BLOOD CHLORIDE DECREASED [None]
  - BLOOD CALCIUM DECREASED [None]
  - BLOOD CREATINE PHOSPHOKINASE INCREASED [None]
  - WHITE BLOOD CELL COUNT INCREASED [None]
  - INTERNATIONAL NORMALISED RATIO INCREASED [None]
  - BLOOD CREATININE INCREASED [None]
  - BLOOD ALBUMIN DECREASED [None]
